FAERS Safety Report 20528338 (Version 1)
Quarter: 2022Q1

REPORT INFORMATION
  Report Type: Spontaneous
  Country: US (occurrence: None)
  Receive Date: 20220228
  Receipt Date: 20220228
  Transmission Date: 20220424
  Serious: Yes (Hospitalization)
  Sender: FDA-Public Use
  Company Number: None

PATIENT
  Age: 42 Year
  Sex: Male
  Weight: 90 kg

DRUGS (5)
  1. METRONIDAZOLE [Suspect]
     Active Substance: METRONIDAZOLE
     Indication: Gastric disorder
     Dosage: OTHER QUANTITY : 30 TABLET(S);?FREQUENCY : 3 TIMES A DAY;?
     Route: 048
     Dates: start: 20220219, end: 20220228
  2. UNSPECIFIED INGREDIENT [Concomitant]
     Active Substance: UNSPECIFIED INGREDIENT
  3. ATORVASTATIN [Concomitant]
     Active Substance: ATORVASTATIN
  4. CHOLESTEROL [Concomitant]
     Active Substance: CHOLESTEROL
  5. ANXIETY MES [Concomitant]

REACTIONS (6)
  - Pain in extremity [None]
  - Hypoaesthesia [None]
  - Pruritus [None]
  - Insomnia [None]
  - Lip dry [None]
  - Dizziness [None]

NARRATIVE: CASE EVENT DATE: 20220219
